FAERS Safety Report 24917762 (Version 1)
Quarter: 2025Q1

REPORT INFORMATION
  Report Type: Spontaneous
  Country: US (occurrence: US)
  Receive Date: 20250203
  Receipt Date: 20250203
  Transmission Date: 20250408
  Serious: No
  Sender: SANOFI AVENTIS
  Company Number: US-SA-2024SA309968

PATIENT
  Sex: Female
  Weight: 63.5 kg

DRUGS (21)
  1. DUPIXENT [Suspect]
     Active Substance: DUPILUMAB
     Indication: Nasal polyps
     Dosage: 300 MG, QOW
     Route: 058
  2. DUPIXENT [Suspect]
     Active Substance: DUPILUMAB
     Indication: Seborrhoeic dermatitis
  3. LUMRYZ [Suspect]
     Active Substance: SODIUM OXYBATE
  4. WAKIX [Concomitant]
     Active Substance: PITOLISANT HYDROCHLORIDE
  5. VYVANSE [Concomitant]
     Active Substance: LISDEXAMFETAMINE DIMESYLATE
  6. AMPHETAMINE SULFATE [Concomitant]
     Active Substance: AMPHETAMINE SULFATE
  7. DOXYCYCLINE [Concomitant]
     Active Substance: DOXYCYCLINE
  8. AMLODIPINE BESYLATE [Concomitant]
     Active Substance: AMLODIPINE BESYLATE
  9. PROPRANOLOL HYDROCHLORIDE [Concomitant]
     Active Substance: PROPRANOLOL HYDROCHLORIDE
  10. DEXAMETHASONE [Concomitant]
     Active Substance: DEXAMETHASONE
  11. FLUTICASONE PROPIONATE [Concomitant]
     Active Substance: FLUTICASONE PROPIONATE
  12. DESVENLAFAXINE SUCCINATE [Concomitant]
     Active Substance: DESVENLAFAXINE SUCCINATE
  13. VITAMINS [Concomitant]
     Active Substance: VITAMINS
  14. B12 ACTIVE [Concomitant]
  15. VITAMIN D3 [Concomitant]
     Active Substance: CHOLECALCIFEROL
  16. PROPRANOLOL HYDROCHLORIDE [Concomitant]
     Active Substance: PROPRANOLOL HYDROCHLORIDE
  17. LINZESS [Concomitant]
     Active Substance: LINACLOTIDE
  18. GABAPENTIN [Concomitant]
     Active Substance: GABAPENTIN
  19. RIZATRIPTAN [Concomitant]
     Active Substance: RIZATRIPTAN
  20. ONDANSETRON HYDROCHLORIDE [Concomitant]
     Active Substance: ONDANSETRON HYDROCHLORIDE
  21. QULIPTA [Concomitant]
     Active Substance: ATOGEPANT

REACTIONS (2)
  - Mobility decreased [Unknown]
  - Product use in unapproved indication [Unknown]
